FAERS Safety Report 4515242-4 (Version None)
Quarter: 2004Q4

REPORT INFORMATION
  Report Type: 
  Country: None (occurrence: None)
  Receive Date: 20041130
  Receipt Date: 20041130
  Transmission Date: 20050328
  Serious: Yes (Congenital Anomaly, Other)
  Sender: FDA-Public Use
  Company Number: None

PATIENT
  Sex: Male
  Weight: 72.5755 kg

DRUGS (1)
  1. CIPROFLOXACIN [Suspect]
     Indication: URINARY TRACT INFECTION
     Dosage: 2 A DAY
     Dates: start: 20040715, end: 20040719

REACTIONS (14)
  - ABDOMINAL DISTENSION [None]
  - ABDOMINAL PAIN [None]
  - ASCITES [None]
  - ASTHENIA [None]
  - CONFUSIONAL STATE [None]
  - DISORIENTATION [None]
  - DRUG TOLERANCE DECREASED [None]
  - HEPATITIS [None]
  - MALAISE [None]
  - MUSCLE CRAMP [None]
  - PAIN IN EXTREMITY [None]
  - SOMNOLENCE [None]
  - URINARY TRACT INFECTION [None]
  - WEIGHT DECREASED [None]
